FAERS Safety Report 8974508 (Version 1)
Quarter: 2012Q4

REPORT INFORMATION
  Report Type: 
  Country: JP (occurrence: JP)
  Receive Date: 20121219
  Receipt Date: 20121219
  Transmission Date: 20130627
  Serious: Yes (Death)
  Sender: FDA-Public Use
  Company Number: JP-009507513-1212JPN006788

PATIENT
  Age: 80 Year
  Sex: Male

DRUGS (4)
  1. GLACTIV [Suspect]
     Indication: TYPE 2 DIABETES MELLITUS
     Dosage: 50 mg, qd
     Route: 048
     Dates: start: 20110613, end: 20120115
  2. THEO-DUR [Concomitant]
     Dosage: UNK
     Dates: start: 20050120, end: 20120115
  3. CAMOSTAT MESYLATE [Concomitant]
     Dosage: UNK
     Dates: start: 20100612, end: 20120115
  4. AITANT [Concomitant]
     Dosage: UNK
     Dates: start: 20060117, end: 20120115

REACTIONS (1)
  - Chronic respiratory failure [Fatal]
